FAERS Safety Report 10041515 (Version 1)
Quarter: 2014Q1

REPORT INFORMATION
  Report Type: Spontaneous
  Country: US (occurrence: US)
  Receive Date: 20140327
  Receipt Date: 20140327
  Transmission Date: 20141002
  Serious: Yes (Hospitalization, Other)
  Sender: FDA-Public Use
  Company Number: US-TEVA-470591USA

PATIENT
  Age: 87 Year
  Sex: Female

DRUGS (1)
  1. TREANDA [Suspect]
     Indication: CHRONIC LYMPHOCYTIC LEUKAEMIA
     Dosage: ON DAY 1 AND DAY 2
     Dates: start: 2014

REACTIONS (5)
  - White blood cell count abnormal [Unknown]
  - Neutrophil count abnormal [Unknown]
  - Haemoglobin abnormal [Unknown]
  - Blood uric acid abnormal [Unknown]
  - Diarrhoea [Not Recovered/Not Resolved]
